FAERS Safety Report 24106439 (Version 1)
Quarter: 2024Q3

REPORT INFORMATION
  Report Type: Spontaneous
  Country: IN (occurrence: IN)
  Receive Date: 20240717
  Receipt Date: 20240717
  Transmission Date: 20241017
  Serious: Yes (Hospitalization, Other)
  Sender: SANDOZ
  Company Number: IN-SANDOZ-SDZ2024IN065569

PATIENT
  Sex: Female

DRUGS (1)
  1. TACROLIMUS [Suspect]
     Active Substance: TACROLIMUS
     Indication: Renal transplant
     Dosage: 2.5 MG MORNING + 2.5 MG NIGHT
     Route: 048

REACTIONS (4)
  - Panel-reactive antibody increased [Unknown]
  - Hyperkalaemia [Unknown]
  - Periorbital swelling [Unknown]
  - Swelling face [Unknown]
